FAERS Safety Report 23054294 (Version 1)
Quarter: 2023Q4

REPORT INFORMATION
  Report Type: Spontaneous
  Country: US (occurrence: None)
  Receive Date: 20231010
  Receipt Date: 20231010
  Transmission Date: 20240110
  Serious: Yes (Other)
  Sender: FDA-Public Use
  Company Number: None

PATIENT
  Age: 41 Year
  Sex: Female
  Weight: 110.25 kg

DRUGS (2)
  1. EMETROL [Suspect]
     Active Substance: DEXTROSE\FRUCTOSE\PHOSPHORIC ACID
     Indication: Nausea
     Dosage: OTHER QUANTITY : 2 TABLET(S);?OTHER FREQUENCY : UP TO 24 TABLETS;?
     Route: 048
     Dates: start: 20231010, end: 20231010
  2. EMETROL [Suspect]
     Active Substance: DEXTROSE\FRUCTOSE\PHOSPHORIC ACID
     Indication: Abdominal pain upper

REACTIONS (5)
  - Abdominal discomfort [None]
  - Nausea [None]
  - Pruritus [None]
  - Rash [None]
  - Hypoaesthesia oral [None]

NARRATIVE: CASE EVENT DATE: 20231010
